FAERS Safety Report 4888442-1 (Version None)
Quarter: 2006Q1

REPORT INFORMATION
  Report Type: 
  Country: None (occurrence: None)
  Receive Date: 20060119
  Receipt Date: 20060109
  Transmission Date: 20060701
  Serious: Yes (Life-Threatening)
  Sender: FDA-Public Use
  Company Number: 06H-163-0304347-00

PATIENT
  Age: 38 Year
  Sex: Female

DRUGS (3)
  1. SUCCINYLCHOLINE CHLORIDE [Suspect]
     Indication: INDUCTION OF ANAESTHESIA
     Dosage: 100 MG, INTRAVENOUS
     Route: 042
  2. PROPOFOL [Suspect]
     Indication: INDUCTION OF ANAESTHESIA
     Dosage: 140 MG, INTRAVENOUS
     Route: 042
  3. FENTANYL [Concomitant]

REACTIONS (3)
  - GENERAL PHYSICAL HEALTH DETERIORATION [None]
  - SUPRAVENTRICULAR TACHYCARDIA [None]
  - VENTRICULAR FIBRILLATION [None]
